FAERS Safety Report 17394518 (Version 4)
Quarter: 2020Q4

REPORT INFORMATION
  Report Type: Spontaneous
  Country: US (occurrence: US)
  Receive Date: 20200210
  Receipt Date: 20201020
  Transmission Date: 20210113
  Serious: Yes (Death, Life-Threatening, Hospitalization, Disabling, Other)
  Sender: FDA-Public Use
  Company Number: US-009507513-2002USA000759

PATIENT
  Age: 62 Year
  Sex: Male

DRUGS (5)
  1. NOXAFIL [Suspect]
     Active Substance: POSACONAZOLE
     Dosage: 300MG DAILY
     Dates: start: 2018, end: 2018
  2. ACYCLOVIR. [Concomitant]
     Active Substance: ACYCLOVIR
  3. NOXAFIL [Suspect]
     Active Substance: POSACONAZOLE
     Indication: HODGKIN^S DISEASE
     Dosage: 300 MILLIGRAM, DAILY
     Dates: start: 201802, end: 20181104
  4. NOXAFIL [Suspect]
     Active Substance: POSACONAZOLE
     Indication: PROPHYLAXIS
     Dosage: 400 MILLIGRAM, TWICE A DAY
     Dates: start: 20181105, end: 20181112
  5. PREDNISONE. [Concomitant]
     Active Substance: PREDNISONE

REACTIONS (13)
  - Acute kidney injury [Fatal]
  - Dyspnoea [Unknown]
  - Hypotension [Fatal]
  - Bedridden [Unknown]
  - Discharge [Unknown]
  - Incorrect dosage administered [Unknown]
  - Graft versus host disease [Fatal]
  - Pneumonia [Unknown]
  - Platelet count decreased [Unknown]
  - Multiple organ dysfunction syndrome [Fatal]
  - Scrotal swelling [Unknown]
  - Fall [Unknown]
  - Abdominal distension [Unknown]

NARRATIVE: CASE EVENT DATE: 2018
